FAERS Safety Report 8798906 (Version 1)
Quarter: 2012Q4

REPORT INFORMATION
  Report Type: 
  Country: US (occurrence: US)
  Receive Date: 20120920
  Receipt Date: 20120920
  Transmission Date: 20130627
  Serious: No
  Sender: FDA-Public Use
  Company Number: US-PFIZER INC-2012232673

PATIENT
  Age: 56 Year
  Sex: Female
  Weight: 109 kg

DRUGS (8)
  1. ZOLOFT [Suspect]
     Indication: STRESS
     Dosage: 100 mg, Daily
     Dates: start: 2009, end: 201208
  2. NEURONTIN [Suspect]
     Indication: NERVE INJURY
     Dosage: 300 mg, 3x/day
     Dates: start: 2008
  3. NEURONTIN [Suspect]
     Dosage: 300mg 2 tablets in morning, 1 tablet in afternoon and 2 tablets at night
     Dates: end: 201208
  4. LISINOPRIL [Concomitant]
     Indication: HYPERTENSION
     Dosage: 20 mg, daily
  5. ALLEGRA [Concomitant]
     Indication: ASTHMA
     Dosage: 180 mg, 2x/day
  6. PRO-AIR [Concomitant]
     Indication: ASTHMA
     Dosage: UNK, as needed
  7. ATROVENT [Concomitant]
     Indication: ASTHMA
     Dosage: unknown dose 2 puffs, 4x/day
  8. PULMICORT [Concomitant]
     Indication: ASTHMA
     Dosage: UNK, 2x/day

REACTIONS (3)
  - Emotional disorder [Not Recovered/Not Resolved]
  - Back pain [Not Recovered/Not Resolved]
  - Pain in extremity [Not Recovered/Not Resolved]
